FAERS Safety Report 6892179-7 (Version None)
Quarter: 2010Q3

REPORT INFORMATION
  Report Type: 
  Country: None (occurrence: None)
  Receive Date: 20100731
  Receipt Date: 20080213
  Transmission Date: 20110219
  Serious: No
  Sender: FDA-Public Use
  Company Number: US-PFIZER INC-2008014833

PATIENT
  Sex: Female
  Weight: 82.3 kg

DRUGS (5)
  1. NEURONTIN [Suspect]
     Indication: FIBROMYALGIA
     Dates: start: 20070104, end: 20070208
  2. LYRICA [Suspect]
     Indication: FIBROMYALGIA
     Dates: start: 20070406
  3. OPHTHALMOLOGICALS [Concomitant]
  4. HYDROCHLOROTHIAZIDE [Concomitant]
  5. CELEXA [Concomitant]

REACTIONS (13)
  - BACK PAIN [None]
  - BALANCE DISORDER [None]
  - CONSTIPATION [None]
  - DIZZINESS [None]
  - DRUG INTOLERANCE [None]
  - FATIGUE [None]
  - FEELING ABNORMAL [None]
  - MALAISE [None]
  - MYALGIA [None]
  - OEDEMA [None]
  - SOMNOLENCE [None]
  - VISION BLURRED [None]
  - WEIGHT INCREASED [None]
